FAERS Safety Report 8454322-8 (Version None)
Quarter: 2012Q2

REPORT INFORMATION
  Report Type: 
  Country: None (occurrence: None)
  Receive Date: 20120620
  Receipt Date: 20120615
  Transmission Date: 20120825
  Serious: Yes (Death)
  Sender: FDA-Public Use
  Company Number: US-AMGEN-USASP2012037474

PATIENT
  Age: 70 Year
  Sex: Male

DRUGS (2)
  1. XELODA [Concomitant]
     Dosage: 2 MG, UNK
  2. ENBREL [Suspect]
     Indication: PRODUCT USED FOR UNKNOWN INDICATION
     Dosage: 50 MG, QWK
     Dates: start: 20050701

REACTIONS (1)
  - DEATH [None]
